FAERS Safety Report 15138213 (Version 2)
Quarter: 2018Q3

REPORT INFORMATION
  Report Type: Report from Study
  Country: CO (occurrence: CO)
  Receive Date: 20180713
  Receipt Date: 20180719
  Transmission Date: 20181010
  Serious: Yes (Life-Threatening, Hospitalization, Other)
  Sender: FDA-Public Use
  Company Number: CO-UCBSA-2018030284

PATIENT
  Age: 22 Year
  Sex: Male

DRUGS (1)
  1. LACOSAMIDE. [Suspect]
     Active Substance: LACOSAMIDE
     Indication: EPILEPSY
     Dosage: 200 MG, 2X/DAY (BID)
     Route: 048
     Dates: start: 20180530

REACTIONS (3)
  - Cardiac arrest [Recovered/Resolved]
  - Chest injury [Unknown]
  - Victim of crime [Unknown]

NARRATIVE: CASE EVENT DATE: 20180620
